FAERS Safety Report 18264165 (Version 1)
Quarter: 2020Q3

REPORT INFORMATION
  Report Type: Spontaneous
  Country: GB (occurrence: GB)
  Receive Date: 20200914
  Receipt Date: 20200914
  Transmission Date: 20201103
  Serious: Yes (Hospitalization, Other)
  Sender: FDA-Public Use
  Company Number: NVSC2020GB248267

PATIENT
  Age: 62 Year
  Sex: Female

DRUGS (1)
  1. OXALIPLATIN. [Suspect]
     Active Substance: OXALIPLATIN
     Indication: COLORECTAL CANCER
     Dosage: 120 MG
     Route: 042
     Dates: start: 20190101

REACTIONS (1)
  - Cardiospasm [Recovered/Resolved with Sequelae]

NARRATIVE: CASE EVENT DATE: 20190101
